FAERS Safety Report 13285105 (Version 1)
Quarter: 2017Q1

REPORT INFORMATION
  Report Type: Spontaneous
  Country: US (occurrence: US)
  Receive Date: 20170301
  Receipt Date: 20170301
  Transmission Date: 20170428
  Serious: Yes (Other)
  Sender: FDA-Public Use
  Company Number: None

PATIENT
  Age: 81 Year
  Sex: Male
  Weight: 71.1 kg

DRUGS (7)
  1. CLINDAMYCIN. [Suspect]
     Active Substance: CLINDAMYCIN
     Indication: INFECTION
     Dosage: ?          QUANTITY:1 CAPSULE(S);?
     Route: 048
     Dates: start: 20170205, end: 20170207
  2. BABY ASPIRIN [Concomitant]
     Active Substance: ASPIRIN
  3. CENTRUM SILVER [Concomitant]
     Active Substance: MINERALS\VITAMINS
  4. GLUCASAMINE/CHONDROITIN [Concomitant]
  5. CRESTOR [Concomitant]
     Active Substance: ROSUVASTATIN CALCIUM
  6. AMLODEPEINE/BENAZ [Concomitant]
  7. CALCIUM/MAGNESIUM [Concomitant]

REACTIONS (3)
  - Pain [None]
  - Tendonitis [None]
  - Nausea [None]

NARRATIVE: CASE EVENT DATE: 20170205
